FAERS Safety Report 10031185 (Version 1)
Quarter: 2014Q1

REPORT INFORMATION
  Report Type: Spontaneous
  Country: US (occurrence: US)
  Receive Date: 20140324
  Receipt Date: 20140324
  Transmission Date: 20141002
  Serious: No
  Sender: FDA-Public Use
  Company Number: US-BIOGENIDEC-2014BI025855

PATIENT
  Age: 53 Year
  Sex: Male

DRUGS (1)
  1. AVONEX [Suspect]
     Indication: MULTIPLE SCLEROSIS
     Route: 030
     Dates: start: 20131212

REACTIONS (8)
  - Vertigo [Not Recovered/Not Resolved]
  - Gait disturbance [Unknown]
  - Musculoskeletal disorder [Unknown]
  - Dizziness [Unknown]
  - Palpitations [Unknown]
  - Dyspnoea [Not Recovered/Not Resolved]
  - Asthenia [Unknown]
  - Heart rate increased [Not Recovered/Not Resolved]
